FAERS Safety Report 10725962 (Version 1)
Quarter: 2015Q1

REPORT INFORMATION
  Report Type: Spontaneous
  Country: US (occurrence: US)
  Receive Date: 20150121
  Receipt Date: 20150121
  Transmission Date: 20150721
  Serious: Yes (Hospitalization)
  Sender: FDA-Public Use
  Company Number: US-JNJFOC-20150104916

PATIENT
  Age: 23 Month
  Sex: Male

DRUGS (2)
  1. CHILDRENS TYLENOL [Suspect]
     Active Substance: ACETAMINOPHEN
     Route: 048
  2. CHILDRENS TYLENOL [Suspect]
     Active Substance: ACETAMINOPHEN
     Indication: ACCIDENTAL EXPOSURE TO PRODUCT
     Dosage: 1 TABLET ONE TIME
     Route: 048
     Dates: start: 20141008

REACTIONS (5)
  - Product quality issue [Unknown]
  - Bacterial infection [Recovered/Resolved]
  - Failure of child resistant mechanism for pharmaceutical product [None]
  - Seizure [Recovered/Resolved]
  - Accidental exposure to product by child [Unknown]

NARRATIVE: CASE EVENT DATE: 20141008
